FAERS Safety Report 5696265-9 (Version None)
Quarter: 2008Q2

REPORT INFORMATION
  Report Type: 
  Country: None (occurrence: None)
  Receive Date: 20080407
  Receipt Date: 20080331
  Transmission Date: 20081010
  Serious: Yes (Other)
  Sender: FDA-Public Use
  Company Number: US-PFIZER INC-2008028798

PATIENT
  Sex: Female

DRUGS (1)
  1. XANAX [Suspect]
     Indication: SLEEP DISORDER
     Dosage: DAILY DOSE:4MG

REACTIONS (2)
  - DYSKINESIA [None]
  - HEAD BANGING [None]
